FAERS Safety Report 17792431 (Version 3)
Quarter: 2022Q2

REPORT INFORMATION
  Report Type: Report from Study
  Country: US (occurrence: US)
  Receive Date: 20200515
  Receipt Date: 20220513
  Transmission Date: 20220721
  Serious: Yes (Other)
  Sender: FDA-Public Use
  Company Number: US-TEVA-2020-US-1235676

PATIENT
  Sex: Female

DRUGS (2)
  1. CLARAVIS [Suspect]
     Active Substance: ISOTRETINOIN
     Dosage: 60 MILLIGRAM DAILY; (30 MG ORAL DOSE: 1 CAPSULE FREQUENCY: TWICE A DAY) THE SUSPECT MEDICATION WAS T
     Route: 048
  2. CLARAVIS [Suspect]
     Active Substance: ISOTRETINOIN
     Dosage: 40 MILLIGRAM DAILY;  40 MG ORAL DOSE- 1 CAPSULE FREQUENCY: DAILY) THE SUSPECT MEDICATION WAS TAKEN B
     Route: 048
     Dates: start: 20200508

REACTIONS (1)
  - Unintended pregnancy [Unknown]
